FAERS Safety Report 13467953 (Version 1)
Quarter: 2017Q2

REPORT INFORMATION
  Report Type: Report from Study
  Country: US (occurrence: US)
  Receive Date: 20170421
  Receipt Date: 20170421
  Transmission Date: 20170830
  Serious: Yes (Hospitalization, Other)
  Sender: FDA-Public Use
  Company Number: US-JNJFOC-20170303043

PATIENT
  Age: 82 Year
  Sex: Male

DRUGS (11)
  1. EFUDEX [Concomitant]
     Active Substance: FLUOROURACIL
  2. LYRICA [Concomitant]
     Active Substance: PREGABALIN
  3. MIRALAX [Concomitant]
     Active Substance: POLYETHYLENE GLYCOL 3350
  4. COMBIVENT [Concomitant]
     Active Substance: ALBUTEROL SULFATE\IPRATROPIUM BROMIDE
  5. CALCIUM [Concomitant]
     Active Substance: CALCIUM
  6. NORCO [Concomitant]
     Active Substance: ACETAMINOPHEN\HYDROCODONE BITARTRATE
  7. FORTICAL [Concomitant]
     Active Substance: CALCITONIN SALMON
  8. IMBRUVICA [Suspect]
     Active Substance: IBRUTINIB
     Indication: CHRONIC LYMPHOCYTIC LEUKAEMIA
     Route: 048
     Dates: start: 20170124
  9. ZYLOPRIM [Concomitant]
     Active Substance: ALLOPURINOL
  10. ASMANEX [Concomitant]
     Active Substance: MOMETASONE FUROATE
  11. COMPAZINE [Concomitant]
     Active Substance: PROCHLORPERAZINE MALEATE

REACTIONS (7)
  - Fatigue [Not Recovered/Not Resolved]
  - Immunodeficiency [Unknown]
  - Nephrolithiasis [Recovered/Resolved]
  - Pneumonia [Recovered/Resolved]
  - Headache [Recovered/Resolved]
  - Cystitis [Recovered/Resolved]
  - Cholelithiasis [Unknown]

NARRATIVE: CASE EVENT DATE: 201701
